FAERS Safety Report 7023469-5 (Version None)
Quarter: 2010Q3

REPORT INFORMATION
  Report Type: 
  Country: None (occurrence: None)
  Receive Date: 20100929
  Receipt Date: 20100914
  Transmission Date: 20110219
  Serious: Yes (Other)
  Sender: FDA-Public Use
  Company Number: 008803

PATIENT
  Sex: Female

DRUGS (4)
  1. KEPPRA [Suspect]
     Indication: EPILEPSY
     Dosage: 2500 MG, 750 MG QID
     Dates: end: 20091130
  2. KEPPRA [Suspect]
     Indication: EPILEPSY
     Dosage: 2500 MG, 750 MG QID
     Dates: start: 20091201
  3. LEVETIRACETAM [Suspect]
     Indication: EPILEPSY
     Dosage: 250 MG
     Dates: start: 20091101
  4. PRENATAL VITAMINS /01549301/ [Concomitant]

REACTIONS (10)
  - ABDOMINAL PAIN [None]
  - CONSTIPATION [None]
  - CONVULSION [None]
  - DRUG EXPOSURE DURING PREGNANCY [None]
  - HEADACHE [None]
  - INSOMNIA [None]
  - MUSCLE TWITCHING [None]
  - NAUSEA [None]
  - UPPER RESPIRATORY TRACT INFECTION [None]
  - VAGINAL HAEMORRHAGE [None]
